FAERS Safety Report 7753629-7 (Version None)
Quarter: 2011Q3

REPORT INFORMATION
  Report Type: 
  Country: None (occurrence: None)
  Receive Date: 20110915
  Receipt Date: 20110913
  Transmission Date: 20111222
  Serious: Yes (Hospitalization)
  Sender: FDA-Public Use
  Company Number: IN-GLAXOSMITHKLINE-B0746151A

PATIENT
  Age: 65 Year
  Sex: Male

DRUGS (1)
  1. VOTRIENT [Suspect]
     Indication: NEOPLASM MALIGNANT
     Dosage: 800MG SINGLE DOSE
     Route: 065

REACTIONS (7)
  - FURUNCLE [None]
  - BODY TEMPERATURE DECREASED [None]
  - SKIN EXFOLIATION [None]
  - RASH PRURITIC [None]
  - OEDEMA PERIPHERAL [None]
  - CHILLS [None]
  - PAIN IN EXTREMITY [None]
